FAERS Safety Report 7436274-2 (Version None)
Quarter: 2011Q2

REPORT INFORMATION
  Report Type: 
  Country: None (occurrence: None)
  Receive Date: 20110426
  Receipt Date: 20110414
  Transmission Date: 20111010
  Serious: Yes (Hospitalization)
  Sender: FDA-Public Use
  Company Number: US-US-EMD SERONO, INC.-7051951

PATIENT
  Sex: Female
  Weight: 29 kg

DRUGS (1)
  1. SAIZEN [Suspect]
     Indication: GROWTH HORMONE DEFICIENCY
     Dates: start: 20110203

REACTIONS (6)
  - ANXIETY [None]
  - STREPTOCOCCAL INFECTION [None]
  - CHOREA [None]
  - ACARODERMATITIS [None]
  - INSOMNIA [None]
  - RHEUMATIC FEVER [None]
